FAERS Safety Report 21239909 (Version 1)
Quarter: 2022Q3

REPORT INFORMATION
  Report Type: Spontaneous
  Country: US (occurrence: None)
  Receive Date: 20220820
  Receipt Date: 20220820
  Transmission Date: 20221027
  Serious: Yes (Disabling, Other)
  Sender: FDA-Public Use
  Company Number: None

PATIENT
  Age: 52 Year
  Sex: Female
  Weight: 81.9 kg

DRUGS (1)
  1. BACITRACIN ZINC AND POLYMYXIN B SULFATE [Suspect]
     Active Substance: BACITRACIN ZINC\POLYMYXIN B SULFATE
     Indication: Eye irritation
     Dosage: 1 DROP EVERY 4 HOURS OPHTHALMIC ?
     Route: 047
     Dates: start: 20220817, end: 20220818

REACTIONS (5)
  - Eye swelling [None]
  - Blister [None]
  - Rash [None]
  - Pruritus [None]
  - Impaired healing [None]

NARRATIVE: CASE EVENT DATE: 20220818
